FAERS Safety Report 20517897 (Version 1)
Quarter: 2022Q1

REPORT INFORMATION
  Report Type: Spontaneous
  Country: TR (occurrence: TR)
  Receive Date: 20220225
  Receipt Date: 20220225
  Transmission Date: 20220423
  Serious: Yes (Other)
  Sender: FDA-Public Use
  Company Number: TR-HQ SPECIALTY-TR-2022INT000050

PATIENT

DRUGS (3)
  1. CISPLATIN [Suspect]
     Active Substance: CISPLATIN
     Indication: Testicular seminoma (pure) stage II
     Dosage: BEP THERAPY (4 CYCLES)
     Route: 065
  2. BLEOMYCIN [Suspect]
     Active Substance: BLEOMYCIN SULFATE
     Indication: Testicular seminoma (pure) stage II
     Dosage: BEP THERAPY (4 CYCLES)
     Route: 065
  3. ETOPOSIDE [Suspect]
     Active Substance: ETOPOSIDE
     Indication: Testicular seminoma (pure) stage II
     Dosage: BEP THERAPY (4 CYCLES)
     Route: 065

REACTIONS (1)
  - Pulmonary toxicity [Recovered/Resolved]
